FAERS Safety Report 11221972 (Version 1)
Quarter: 2015Q2

REPORT INFORMATION
  Report Type: Report from Study
  Country: DE (occurrence: DE)
  Receive Date: 20150626
  Receipt Date: 20150626
  Transmission Date: 20150821
  Serious: Yes (Disabling)
  Sender: FDA-Public Use
  Company Number: DE-ROCHE-1599727

PATIENT
  Age: 89 Year
  Sex: Male
  Weight: 80 kg

DRUGS (1)
  1. RANIBIZUMAB [Suspect]
     Active Substance: RANIBIZUMAB
     Indication: MACULAR DEGENERATION
     Route: 050
     Dates: start: 20140415

REACTIONS (1)
  - Retinal pigment epithelial tear [Not Recovered/Not Resolved]

NARRATIVE: CASE EVENT DATE: 20150506
